FAERS Safety Report 4302029-0 (Version None)
Quarter: 2004Q1

REPORT INFORMATION
  Report Type: 
  Country: None (occurrence: None)
  Receive Date: 20040220
  Receipt Date: 20040210
  Transmission Date: 20041129
  Serious: Yes (Other)
  Sender: FDA-Public Use
  Company Number: 2004008963

PATIENT
  Age: 48 Year
  Sex: Male

DRUGS (1)
  1. LIPITOR [Suspect]
     Indication: HYPERCHOLESTEROLAEMIA
     Dosage: 10 MG DAILY ORAL
     Route: 048
     Dates: start: 20030527, end: 20031127

REACTIONS (3)
  - ERECTILE DYSFUNCTION [None]
  - NOCTURIA [None]
  - SALIVARY HYPERSECRETION [None]
